FAERS Safety Report 7435489-7 (Version None)
Quarter: 2011Q2

REPORT INFORMATION
  Report Type: 
  Country: None (occurrence: None)
  Receive Date: 20110425
  Receipt Date: 20110414
  Transmission Date: 20111010
  Serious: Yes (Other)
  Sender: FDA-Public Use
  Company Number: GB-BAXTER-2011BH011876

PATIENT
  Age: 8 Month
  Sex: Male

DRUGS (7)
  1. CYCLOPHOSPHAMIDE [Suspect]
     Indication: HEREDITARY SIDEROBLASTIC ANAEMIA
     Route: 065
  2. BUSULFAN [Suspect]
     Indication: BONE MARROW CONDITIONING REGIMEN
     Route: 042
  3. CAMPATH [Suspect]
     Indication: BONE MARROW CONDITIONING REGIMEN
     Route: 065
  4. CAMPATH [Suspect]
     Indication: HEREDITARY SIDEROBLASTIC ANAEMIA
     Route: 065
  5. CYCLOSPORINE [Concomitant]
     Indication: PROPHYLAXIS AGAINST GRAFT VERSUS HOST DISEASE
     Route: 065
  6. CYCLOPHOSPHAMIDE [Suspect]
     Indication: BONE MARROW CONDITIONING REGIMEN
     Route: 065
  7. BUSULFAN [Suspect]
     Indication: HEREDITARY SIDEROBLASTIC ANAEMIA
     Route: 042

REACTIONS (2)
  - ENTEROBACTER INFECTION [None]
  - GRAFT VERSUS HOST DISEASE [None]
